FAERS Safety Report 10555716 (Version 2)
Quarter: 2014Q4

REPORT INFORMATION
  Report Type: Spontaneous
  Country: AT (occurrence: AT)
  Receive Date: 20141030
  Receipt Date: 20141030
  Transmission Date: 20150529
  Serious: Yes (Other)
  Sender: FDA-Public Use
  Company Number: PHHY2014AT075759

PATIENT
  Sex: Female

DRUGS (1)
  1. GILENYA [Suspect]
     Active Substance: FINGOLIMOD HYDROCHLORIDE
     Route: 048

REACTIONS (6)
  - Rash pustular [Unknown]
  - Body temperature increased [Unknown]
  - Abdominal pain [Unknown]
  - Rash papular [Unknown]
  - Diarrhoea [Unknown]
  - Collagen disorder [Unknown]
